FAERS Safety Report 15006741 (Version 2)
Quarter: 2018Q2

REPORT INFORMATION
  Report Type: Report from Study
  Country: US (occurrence: US)
  Receive Date: 20180613
  Receipt Date: 20180614
  Transmission Date: 20180711
  Serious: Yes (Hospitalization)
  Sender: FDA-Public Use
  Company Number: US-US WORLDMEDS, LLC-USW201801-000017

PATIENT
  Age: 85 Year
  Sex: Male
  Weight: 75.74 kg

DRUGS (8)
  1. RYTARY [Concomitant]
     Active Substance: CARBIDOPA\LEVODOPA
     Dates: start: 201708
  2. RYTARY [Concomitant]
     Active Substance: CARBIDOPA\LEVODOPA
  3. PACERONE [Concomitant]
     Active Substance: AMIODARONE HYDROCHLORIDE
  4. ASA [Concomitant]
     Active Substance: ASPIRIN
  5. VITAMIN E [Concomitant]
     Active Substance: .ALPHA.-TOCOPHEROL
  6. BETA CAROTENE [Concomitant]
  7. APOKYN [Suspect]
     Active Substance: APOMORPHINE HYDROCHLORIDE
     Indication: PARKINSON^S DISEASE
     Route: 058
     Dates: start: 20160701, end: 20171219
  8. CRESTOR [Concomitant]
     Active Substance: ROSUVASTATIN CALCIUM

REACTIONS (6)
  - Hypotension [Not Recovered/Not Resolved]
  - Dizziness [Not Recovered/Not Resolved]
  - Cardiac disorder [Recovered/Resolved]
  - Syncope [Unknown]
  - Asthenia [Not Recovered/Not Resolved]
  - Chest discomfort [Recovered/Resolved]

NARRATIVE: CASE EVENT DATE: 201607
